FAERS Safety Report 16821199 (Version 2)
Quarter: 2019Q3

REPORT INFORMATION
  Report Type: Spontaneous
  Country: ES (occurrence: ES)
  Receive Date: 20190918
  Receipt Date: 20190930
  Transmission Date: 20191005
  Serious: Yes (Other)
  Sender: FDA-Public Use
  Company Number: ES-TEVA-2019-ES-1108507

PATIENT
  Age: 35 Year

DRUGS (1)
  1. MYCOPHENOLATE MOFETIL. [Suspect]
     Active Substance: MYCOPHENOLATE MOFETIL
     Indication: IMMUNOSUPPRESSANT DRUG THERAPY
     Dosage: CHRONIC THERAPY
     Route: 065

REACTIONS (3)
  - Malnutrition [Recovering/Resolving]
  - Diarrhoea [Recovering/Resolving]
  - Intestinal villi atrophy [Recovering/Resolving]
